FAERS Safety Report 6720405-3 (Version None)
Quarter: 2010Q2

REPORT INFORMATION
  Report Type: 
  Country: None (occurrence: None)
  Receive Date: 20100511
  Receipt Date: 20100430
  Transmission Date: 20101027
  Serious: Yes (Hospitalization)
  Sender: FDA-Public Use
  Company Number: FR-BAXTER-2010BH012427

PATIENT
  Age: 14 Year
  Sex: Male

DRUGS (2)
  1. HOLOXAN BAXTER [Suspect]
     Indication: OSTEOSARCOMA METASTATIC
     Route: 042
     Dates: start: 20100203, end: 20100203
  2. ZOMETA [Suspect]
     Indication: METASTATIC PAIN
     Route: 042
     Dates: start: 20100130, end: 20100130

REACTIONS (4)
  - BLOOD PHOSPHORUS DECREASED [None]
  - HYPERCALCIURIA [None]
  - HYPONATRAEMIA [None]
  - RENAL TUBULAR DISORDER [None]
